FAERS Safety Report 8391881-8 (Version None)
Quarter: 2012Q2

REPORT INFORMATION
  Report Type: 
  Country: None (occurrence: None)
  Receive Date: 20120529
  Receipt Date: 20120522
  Transmission Date: 20120825
  Serious: Yes (Other)
  Sender: FDA-Public Use
  Company Number: US-GLAXOSMITHKLINE-A0978603A

PATIENT
  Age: 58 Year
  Sex: Male

DRUGS (7)
  1. LEVOTHYROXINE SODIUM [Concomitant]
  2. LEVOTHYROXINE SODIUM [Concomitant]
  3. REQUIP XL [Suspect]
     Indication: PARKINSON'S DISEASE
     Dosage: 8MG PER DAY
     Route: 048
     Dates: start: 20110101
  4. AVONEX [Concomitant]
  5. CARBIDOPA AND LEVODOPA [Concomitant]
  6. ENALAPRIL MALEATE [Concomitant]
  7. CITALOPRAM [Concomitant]

REACTIONS (3)
  - EATING DISORDER [None]
  - HALLUCINATION [None]
  - COMPULSIVE SEXUAL BEHAVIOUR [None]
